FAERS Safety Report 9196879 (Version 2)
Quarter: 2013Q2

REPORT INFORMATION
  Report Type: Spontaneous
  Country: US (occurrence: US)
  Receive Date: 20130328
  Receipt Date: 20130405
  Transmission Date: 20140414
  Serious: Yes (Death, Hospitalization)
  Sender: FDA-Public Use
  Company Number: PHEH2013US007120

PATIENT
  Sex: Male

DRUGS (1)
  1. AFINITOR [Suspect]
     Indication: RENAL CANCER
     Dosage: 10 MG, DAILY
     Route: 048

REACTIONS (7)
  - Renal cancer metastatic [Fatal]
  - Malignant neoplasm progression [Fatal]
  - Metastases to liver [Fatal]
  - Obstruction [Unknown]
  - Blood bilirubin increased [Unknown]
  - Liver function test abnormal [Unknown]
  - Leukocytosis [Unknown]
